FAERS Safety Report 7535682-9 (Version None)
Quarter: 2011Q2

REPORT INFORMATION
  Report Type: 
  Country: None (occurrence: None)
  Receive Date: 20110524
  Receipt Date: 20110418
  Transmission Date: 20111010
  Serious: No
  Sender: FDA-Public Use
  Company Number: 031674

PATIENT
  Sex: Female

DRUGS (3)
  1. PREDNISONE [Concomitant]
  2. CIMZIA [Suspect]
     Indication: CROHN'S DISEASE
     Dosage: 200MG
     Dates: start: 20100723
  3. CITALOPRAM HYDROBROMIDE [Concomitant]

REACTIONS (1)
  - NEPHROLITHIASIS [None]
